FAERS Safety Report 9684840 (Version 1)
Quarter: 2013Q4

REPORT INFORMATION
  Report Type: Spontaneous
  Country: SE (occurrence: SE)
  Receive Date: 20131112
  Receipt Date: 20131112
  Transmission Date: 20140711
  Serious: Yes (Life-Threatening, Hospitalization)
  Sender: FDA-Public Use
  Company Number: SE-TEVA-442292ISR

PATIENT
  Age: 31 Year
  Sex: Female

DRUGS (1)
  1. MODIODAL [Suspect]
     Indication: HYPERSOMNIA
     Dosage: 100 MG
     Route: 048
     Dates: start: 20131016, end: 2013

REACTIONS (8)
  - Aggression [Recovering/Resolving]
  - Crying [Recovering/Resolving]
  - Headache [Recovering/Resolving]
  - Nausea [Recovering/Resolving]
  - Palpitations [Recovering/Resolving]
  - Paranoia [Recovering/Resolving]
  - Visual impairment [Recovering/Resolving]
  - Morbid thoughts [Recovering/Resolving]
